FAERS Safety Report 5473920-7 (Version None)
Quarter: 2007Q3

REPORT INFORMATION
  Report Type: 
  Country: None (occurrence: None)
  Receive Date: 20070831
  Receipt Date: 20070626
  Transmission Date: 20080115
  Serious: No
  Sender: FDA-Public Use
  Company Number: 238652

PATIENT
  Sex: Male

DRUGS (5)
  1. LUCENTIS [Suspect]
     Indication: DRUG USE FOR UNKNOWN INDICATION
     Dates: start: 20061101
  2. HYDROCHLOROTHIAZIDE [Concomitant]
  3. PREVACID [Concomitant]
  4. XOPENEX [Concomitant]
  5. FISH OIL [Concomitant]

REACTIONS (1)
  - PHOTOSENSITIVITY REACTION [None]
